FAERS Safety Report 6639984-X (Version None)
Quarter: 2010Q1

REPORT INFORMATION
  Report Type: 
  Country: None (occurrence: None)
  Receive Date: 20100318
  Receipt Date: 20100304
  Transmission Date: 20100710
  Serious: Yes (Hospitalization)
  Sender: FDA-Public Use
  Company Number: PHHY2010JP05385

PATIENT
  Age: 58 Year
  Sex: Female

DRUGS (24)
  1. FAMCICLOVIR [Suspect]
     Indication: HERPES ZOSTER
     Dosage: 250 MG
     Route: 048
     Dates: start: 20100120
  2. FAMCICLOVIR [Suspect]
     Dosage: 750 MG
     Route: 048
     Dates: start: 20100122, end: 20100122
  3. PENTOXYVERINE CITRATE [Concomitant]
  4. NIFEDIPINE [Concomitant]
  5. RABEPRAZOLE SODIUM [Concomitant]
  6. SENNA LEAF_ SENNA POD [Concomitant]
  7. ATORVASTATIN CALCIUM [Concomitant]
  8. SODIUM FERRATE CITRATE [Concomitant]
  9. ALLOPURINOL [Concomitant]
  10. ASPIRIN [Concomitant]
  11. LIMAPROST ALFADEX [Concomitant]
  12. CINACALCET HYDROCHLORIDE [Concomitant]
  13. LOSARTAN POTASSIUM [Concomitant]
  14. AMEZINIUM METILSULFATE [Concomitant]
  15. MECOBALAMIN [Concomitant]
  16. NOVOLIN R [Concomitant]
  17. NOVOLIN N [Concomitant]
  18. REBAMIPIDE [Concomitant]
  19. TRANEXAMIC ACID [Concomitant]
  20. AMLODIPINE BESYLATE [Concomitant]
  21. OLMESARTAN MEDOXOMIL [Concomitant]
  22. TRAPIDIL [Concomitant]
  23. BIFIDOBACTERIUM BIFIDUM [Concomitant]
  24. TRICHLOROMETHIAZIDE [Concomitant]

REACTIONS (1)
  - ALTERED STATE OF CONSCIOUSNESS [None]
